FAERS Safety Report 25242608 (Version 1)
Quarter: 2025Q2

REPORT INFORMATION
  Report Type: Spontaneous
  Country: IT (occurrence: IT)
  Receive Date: 20250427
  Receipt Date: 20250427
  Transmission Date: 20250716
  Serious: Yes (Hospitalization)
  Sender: JOHNSON AND JOHNSON
  Company Number: IT-JNJFOC-20250428401

PATIENT
  Age: 65 Year

DRUGS (2)
  1. SPRAVATO [Suspect]
     Active Substance: ESKETAMINE
     Indication: Product used for unknown indication
     Dosage: 1 DEVICE TWICE A WEEK FOR A TOTAL OF 4 ADMINISTRATIONS
     Route: 045
     Dates: start: 202403
  2. SPRAVATO [Suspect]
     Active Substance: ESKETAMINE
     Dosage: 3 ADMINISTRATIONS IN TOTAL
     Route: 045
     Dates: start: 20250407, end: 20250414

REACTIONS (1)
  - Suicide attempt [Unknown]

NARRATIVE: CASE EVENT DATE: 20250416
